FAERS Safety Report 5593956-5 (Version None)
Quarter: 2008Q1

REPORT INFORMATION
  Report Type: 
  Country: None (occurrence: None)
  Receive Date: 20080114
  Receipt Date: 20071231
  Transmission Date: 20080703
  Serious: Yes (Death)
  Sender: FDA-Public Use
  Company Number: 2008S1000003

PATIENT
  Age: 2 Week
  Sex: Female

DRUGS (1)
  1. INOMAX [Suspect]
     Dosage: ; CONT; INH
     Route: 055

REACTIONS (2)
  - BRADYCARDIA [None]
  - DEVICE FAILURE [None]
